FAERS Safety Report 7474775-1 (Version None)
Quarter: 2011Q1

REPORT INFORMATION
  Report Type: 
  Country: None (occurrence: None)
  Receive Date: 20110302
  Receipt Date: 20101221
  Transmission Date: 20110831
  Serious: Yes (Death)
  Sender: FDA-Public Use
  Company Number: 163-21880-10092448

PATIENT
  Age: 57 Year
  Sex: Female

DRUGS (6)
  1. REVLIMID [Suspect]
     Indication: MULTIPLE MYELOMA
     Dosage: 25 MG, DAILY FOR 21 DAYS, EVERY 28 DAYS, PO
     Route: 048
     Dates: start: 20100903, end: 20100901
  2. COUMADIN [Concomitant]
  3. AMITIZA [Concomitant]
  4. LASIX [Concomitant]
  5. CIPRO [Concomitant]
  6. AMIODARONE (AMIODARONE) [Concomitant]

REACTIONS (2)
  - AMYLOIDOSIS [None]
  - MULTIPLE MYELOMA [None]
